FAERS Safety Report 12470398 (Version 2)
Quarter: 2016Q2

REPORT INFORMATION
  Report Type: Spontaneous
  Country: US (occurrence: US)
  Receive Date: 20160616
  Receipt Date: 20160623
  Transmission Date: 20160815
  Serious: Yes (Other)
  Sender: FDA-Public Use
  Company Number: US-THE MEDICINES COMPANY-US-MDCO-16-00196

PATIENT
  Age: 75 Year
  Sex: Male

DRUGS (8)
  1. ORBACTIV [Suspect]
     Active Substance: ORITAVANCIN
  2. DAPTOMYCIN. [Concomitant]
     Active Substance: DAPTOMYCIN
     Indication: ENTEROCOCCAL BACTERAEMIA
     Dosage: NOT REPORTED
  3. GENTAMICIN. [Suspect]
     Active Substance: GENTAMICIN
     Indication: ENTEROCOCCAL BACTERAEMIA
     Dosage: NOT REPORTED
  4. ORBACTIV [Suspect]
     Active Substance: ORITAVANCIN
  5. ORBACTIV [Suspect]
     Active Substance: ORITAVANCIN
  6. ORBACTIV [Suspect]
     Active Substance: ORITAVANCIN
     Indication: ENTEROCOCCAL BACTERAEMIA
  7. ORBACTIV [Suspect]
     Active Substance: ORITAVANCIN
  8. VANCOMYCIN [Concomitant]
     Active Substance: VANCOMYCIN
     Indication: ENTEROCOCCAL BACTERAEMIA
     Dosage: NOT REPORTED

REACTIONS (4)
  - Dyspnoea [Unknown]
  - Renal impairment [Unknown]
  - Off label use [Unknown]
  - Fluid overload [Unknown]
